FAERS Safety Report 8986484 (Version 1)
Quarter: 2012Q4

REPORT INFORMATION
  Report Type: 
  Country: US (occurrence: US)
  Receive Date: 20121226
  Receipt Date: 20121226
  Transmission Date: 20130627
  Serious: Yes (Other)
  Sender: FDA-Public Use
  Company Number: PHEH2012US024934

PATIENT
  Age: 33 Year
  Sex: Female
  Weight: 70.3 kg

DRUGS (4)
  1. GILENYA [Suspect]
     Indication: MULTIPLE SCLEROSIS
     Dosage: 0.5 mg, QD
     Route: 048
     Dates: start: 20121214, end: 20121214
  2. KLONOPIN [Concomitant]
     Dosage: UNK UKN, UNK
  3. NUVIGIL [Concomitant]
     Dosage: UNK UKN, UNK
  4. BIOTIN [Concomitant]
     Dosage: UNK UKN, UNK

REACTIONS (9)
  - Apparent death [Unknown]
  - Dyspnoea [Unknown]
  - Asphyxia [Not Recovered/Not Resolved]
  - Influenza like illness [Not Recovered/Not Resolved]
  - Feeling abnormal [Not Recovered/Not Resolved]
  - Malaise [Not Recovered/Not Resolved]
  - Pain [Not Recovered/Not Resolved]
  - Pyrexia [Not Recovered/Not Resolved]
  - Vomiting [Not Recovered/Not Resolved]
